FAERS Safety Report 17406934 (Version 1)
Quarter: 2020Q1

REPORT INFORMATION
  Report Type: Spontaneous
  Country: HR (occurrence: HR)
  Receive Date: 20200212
  Receipt Date: 20200212
  Transmission Date: 20200409
  Serious: Yes (Other)
  Sender: FDA-Public Use
  Company Number: HR-LUPIN PHARMACEUTICALS INC.-2020-00685

PATIENT
  Age: 48 Year
  Sex: Female

DRUGS (2)
  1. MISOPROSTOL. [Suspect]
     Active Substance: MISOPROSTOL
     Dosage: UNK (SECOND AMPULLA)
     Route: 019
  2. MISOPROSTOL. [Suspect]
     Active Substance: MISOPROSTOL
     Indication: UTERINE HYPOTONUS
     Dosage: UNK (2 X 0.25 MG)
     Route: 019

REACTIONS (4)
  - Hypotension [Unknown]
  - Bradycardia [Unknown]
  - Product use issue [Unknown]
  - Off label use [Unknown]
